FAERS Safety Report 14109445 (Version 1)
Quarter: 2017Q4

REPORT INFORMATION
  Report Type: Spontaneous
  Country: US (occurrence: US)
  Receive Date: 20171019
  Receipt Date: 20171019
  Transmission Date: 20180321
  Serious: Yes (Hospitalization)
  Sender: FDA-Public Use
  Company Number: US-VIFOR (INTERNATIONAL) INC.-VIT-2017-10299

PATIENT
  Sex: Male

DRUGS (17)
  1. SODIUM CHLORIDE. [Concomitant]
     Active Substance: SODIUM CHLORIDE
  2. COLECALCIFEROL [Concomitant]
     Active Substance: CHOLECALCIFEROL
  3. DIGOX [Concomitant]
     Active Substance: DIGOXIN
  4. MEXILETINE HYDROCHLORIDE. [Concomitant]
     Active Substance: MEXILETINE HYDROCHLORIDE
  5. PARACETAMOL [Concomitant]
     Active Substance: ACETAMINOPHEN
  6. FLUTICASONE PROPIONATE. [Concomitant]
     Active Substance: FLUTICASONE PROPIONATE
  7. HEPARIN SODIUM. [Concomitant]
     Active Substance: HEPARIN SODIUM
  8. FLORASTOR [Concomitant]
     Active Substance: SACCHAROMYCES CEREVISIAE
  9. VELTASSA [Suspect]
     Active Substance: PATIROMER
     Indication: HYPERKALAEMIA
     Route: 048
  10. LISINOPRIL. [Concomitant]
     Active Substance: LISINOPRIL
  11. CARVEDILOL. [Concomitant]
     Active Substance: CARVEDILOL
  12. TORASEMIDE [Concomitant]
     Active Substance: TORSEMIDE
  13. WARFARIN SODIUM. [Concomitant]
     Active Substance: WARFARIN SODIUM
  14. VANCOMYCIN HYDROCHLORIDE. [Concomitant]
     Active Substance: VANCOMYCIN HYDROCHLORIDE
  15. TAMSULOSIN [Concomitant]
     Active Substance: TAMSULOSIN
  16. AMMONIUM LACTATE. [Concomitant]
     Active Substance: AMMONIUM LACTATE
  17. FERROUS SULFATE. [Concomitant]
     Active Substance: FERROUS SULFATE

REACTIONS (1)
  - Clostridium difficile infection [Unknown]
